FAERS Safety Report 4368337-2 (Version None)
Quarter: 2004Q2

REPORT INFORMATION
  Report Type: 
  Country: None (occurrence: None)
  Receive Date: 20040525
  Receipt Date: 20040517
  Transmission Date: 20050107
  Serious: Yes (Other)
  Sender: FDA-Public Use
  Company Number: HQWYE542408SEP03

PATIENT
  Age: 54 Year
  Sex: Female

DRUGS (3)
  1. EFFEXOR [Suspect]
     Indication: DEPRESSION
     Dosage: 75 MG 1X PER 1 DAY ORAL; 150 MG 1X PER 1 DAY ORAL
     Route: 048
     Dates: end: 19991205
  2. EFFEXOR [Suspect]
     Indication: DEPRESSION
     Dosage: 75 MG 1X PER 1 DAY ORAL; 150 MG 1X PER 1 DAY ORAL
     Route: 048
     Dates: start: 19991206, end: 20000624
  3. ELTROXIN (LEVOTHYROXINE SODIUM) [Concomitant]

REACTIONS (2)
  - DENTAL CARIES [None]
  - DRY MOUTH [None]
